FAERS Safety Report 11368906 (Version 3)
Quarter: 2015Q3

REPORT INFORMATION
  Report Type: Report from Study
  Country: CA (occurrence: CA)
  Receive Date: 20150812
  Receipt Date: 20150904
  Transmission Date: 20151125
  Serious: Yes (Hospitalization, Disabling, Other)
  Sender: FDA-Public Use
  Company Number: CA-ABBVIE-15K-028-1440776-00

PATIENT
  Age: 35 Year
  Sex: Male
  Weight: 90 kg

DRUGS (1)
  1. HUMIRA [Suspect]
     Active Substance: ADALIMUMAB
     Indication: PSORIASIS
     Route: 058
     Dates: start: 20140620, end: 20150619

REACTIONS (9)
  - Psoriasis [Not Recovered/Not Resolved]
  - Immunosuppression [Unknown]
  - Limb injury [Unknown]
  - Joint range of motion decreased [Unknown]
  - Necrotising fasciitis streptococcal [Recovered/Resolved with Sequelae]
  - Cellulitis [Unknown]
  - Mobility decreased [Unknown]
  - Scar [Unknown]
  - Psoriasis [Unknown]

NARRATIVE: CASE EVENT DATE: 2015
